FAERS Safety Report 7652365-5 (Version None)
Quarter: 2011Q3

REPORT INFORMATION
  Report Type: 
  Country: None (occurrence: None)
  Receive Date: 20110803
  Receipt Date: 20110721
  Transmission Date: 20111222
  Serious: Yes (Other)
  Sender: FDA-Public Use
  Company Number: IT-ELI_LILLY_AND_COMPANY-IT201107005954

PATIENT
  Age: 26 Year
  Sex: Male

DRUGS (3)
  1. OLANZAPINE [Suspect]
     Dosage: UNK, EACH EVENING
  2. ABILIFY [Concomitant]
     Dosage: UNK
  3. OLANZAPINE [Suspect]
     Dosage: 280 MG
     Dates: start: 20110629, end: 20110629

REACTIONS (4)
  - INTENTIONAL OVERDOSE [None]
  - PSYCHOTIC BEHAVIOUR [None]
  - SOMNOLENCE [None]
  - PERSONALITY DISORDER [None]
